FAERS Safety Report 13722279 (Version 2)
Quarter: 2017Q3

REPORT INFORMATION
  Report Type: Spontaneous
  Country: ES (occurrence: ES)
  Receive Date: 20170706
  Receipt Date: 20170713
  Transmission Date: 20171127
  Serious: Yes (Death, Life-Threatening, Hospitalization, Other)
  Sender: FDA-Public Use
  Company Number: ES-TEVA-776556ROM

PATIENT
  Age: 62 Year
  Sex: Male

DRUGS (3)
  1. FLUOROURACIL. [Concomitant]
     Active Substance: FLUOROURACIL
     Indication: COLORECTAL ADENOCARCINOMA
     Dosage: EIGHT CYCLES (FOLFOX)
     Dates: start: 201601, end: 201604
  2. OXALIPLATIN. [Suspect]
     Active Substance: OXALIPLATIN
     Indication: COLORECTAL ADENOCARCINOMA
     Dosage: EIGHT CYCLES (FOLFOX)
     Dates: start: 201601, end: 201604
  3. FOLINIC ACID [Concomitant]
     Active Substance: LEUCOVORIN
     Indication: COLORECTAL ADENOCARCINOMA
     Dosage: EIGHT CYCLES (FOLFOX)
     Dates: start: 201601, end: 201604

REACTIONS (6)
  - Interstitial lung disease [Fatal]
  - Pneumonitis [Fatal]
  - Dyspnoea [Unknown]
  - Acute respiratory distress syndrome [Fatal]
  - Cough [Unknown]
  - Pyrexia [Unknown]
